FAERS Safety Report 5972819-7 (Version None)
Quarter: 2008Q4

REPORT INFORMATION
  Report Type: 
  Country: None (occurrence: None)
  Receive Date: 20081126
  Receipt Date: 20081126
  Transmission Date: 20090506
  Serious: Yes (Hospitalization)
  Sender: FDA-Public Use
  Company Number: None

PATIENT
  Age: 85 Year
  Sex: Female
  Weight: 60 kg

DRUGS (1)
  1. WARFARIN SODIUM [Suspect]
     Indication: POST PROCEDURAL PULMONARY EMBOLISM
     Dosage: WARFARIN 4MG PO
     Route: 048
     Dates: end: 20080501

REACTIONS (3)
  - BLOOD URINE PRESENT [None]
  - CONFUSIONAL STATE [None]
  - INTERNATIONAL NORMALISED RATIO INCREASED [None]
